FAERS Safety Report 15356967 (Version 1)
Quarter: 2018Q3

REPORT INFORMATION
  Report Type: Spontaneous
  Country: AU (occurrence: AU)
  Receive Date: 20180906
  Receipt Date: 20180906
  Transmission Date: 20181010
  Serious: Yes (Other)
  Sender: FDA-Public Use
  Company Number: AU-GLAXOSMITHKLINE-AU2018GSK159542

PATIENT
  Sex: Male

DRUGS (1)
  1. TAFENOQUINE [Suspect]
     Active Substance: TAFENOQUINE
     Indication: PRODUCT USED FOR UNKNOWN INDICATION
     Dosage: UNK

REACTIONS (6)
  - Irritable bowel syndrome [Unknown]
  - Suicidal ideation [Unknown]
  - Balance disorder [Unknown]
  - Dizziness [Unknown]
  - Anger [Unknown]
  - Major depression [Unknown]
